FAERS Safety Report 10184266 (Version 1)
Quarter: 2014Q2

REPORT INFORMATION
  Report Type: Spontaneous
  Country: US (occurrence: US)
  Receive Date: 20140520
  Receipt Date: 20140520
  Transmission Date: 20141212
  Serious: No
  Sender: FDA-Public Use
  Company Number: US-ASTRAZENECA-2013SE84266

PATIENT
  Age: 66 Year
  Sex: Female
  Weight: 99.8 kg

DRUGS (23)
  1. RHINOCORT AQUA [Suspect]
     Indication: HYPERSENSITIVITY
     Dosage: 64 MCG PER NOSTRIL DAILY
     Route: 045
  2. RHINOCORT AQUA [Suspect]
     Indication: HYPERSENSITIVITY
     Dosage: 2 SPRAYS PER NOSTRIL DAILY
     Route: 045
  3. NEXIUM [Suspect]
     Route: 048
  4. METOPROLOL SUCCINATE [Suspect]
     Route: 048
  5. NORCO [Concomitant]
     Dosage: 750/325 Q4-6H
  6. CYMBALTA [Concomitant]
  7. LEVOCETIRIZINE [Concomitant]
  8. AMLODIPINE [Concomitant]
  9. PREMPRO [Concomitant]
     Dosage: 0.45/1.5 EOD
  10. ASPIRIN [Concomitant]
  11. ACAI [Concomitant]
  12. COQ10 [Concomitant]
  13. VIT D3 [Concomitant]
  14. COLACE [Concomitant]
     Dosage: NR DAILY
  15. METAMUCIL [Concomitant]
     Dosage: NR DAILY
  16. PHILLIPS COLON HEALTH [Concomitant]
     Dosage: NR DAILY
  17. OMEGA 3 [Concomitant]
     Dosage: NR BID
  18. CALCIUM [Concomitant]
  19. OSTEOBIFLEX [Concomitant]
     Dosage: NR DAILY
  20. MULTIVITAMIN [Concomitant]
     Dosage: NR DAILY
  21. GRAPESEED EXTRACT [Concomitant]
     Indication: ARTHRITIS
  22. VIT C [Concomitant]
  23. MAGNESIUM [Concomitant]

REACTIONS (3)
  - Nasal congestion [Unknown]
  - Drug dose omission [Unknown]
  - Intentional product misuse [Unknown]
